FAERS Safety Report 8003178-6 (Version None)
Quarter: 2011Q4

REPORT INFORMATION
  Report Type: 
  Country: None (occurrence: None)
  Receive Date: 20111222
  Receipt Date: 20111213
  Transmission Date: 20120403
  Serious: Yes (Hospitalization, Other)
  Sender: FDA-Public Use
  Company Number: PHHY2011FR109668

PATIENT
  Sex: Female
  Weight: 64 kg

DRUGS (2)
  1. ZOMETA [Suspect]
     Dosage: 4 MG, UNK
     Dates: start: 20111031
  2. SUTENT [Suspect]
     Dosage: 50 MG, DAILY
     Dates: start: 20111031, end: 20111107

REACTIONS (4)
  - HYPOCALCAEMIA [None]
  - LYMPHOPENIA [None]
  - SPINAL CORD COMPRESSION [None]
  - HYPOPHOSPHATAEMIA [None]
